FAERS Safety Report 6146865-7 (Version None)
Quarter: 2009Q2

REPORT INFORMATION
  Report Type: 
  Country: None (occurrence: None)
  Receive Date: 20090407
  Receipt Date: 20090326
  Transmission Date: 20091009
  Serious: Yes (Other)
  Sender: FDA-Public Use
  Company Number: AU-PFIZER INC-2009190564

PATIENT

DRUGS (1)
  1. ZOLOFT [Suspect]

REACTIONS (7)
  - ACTIVITIES OF DAILY LIVING IMPAIRED [None]
  - MENIERE'S DISEASE [None]
  - NAUSEA [None]
  - PARAESTHESIA [None]
  - TINNITUS [None]
  - VERTIGO [None]
  - WITHDRAWAL SYNDROME [None]
